FAERS Safety Report 14337556 (Version 3)
Quarter: 2018Q1

REPORT INFORMATION
  Report Type: Spontaneous
  Country: NO (occurrence: NO)
  Receive Date: 20171229
  Receipt Date: 20180316
  Transmission Date: 20180509
  Serious: Yes (Hospitalization, Disabling)
  Sender: FDA-Public Use
  Company Number: NO-PFIZER INC-2017553563

PATIENT
  Age: 63 Year
  Sex: Male

DRUGS (15)
  1. HIPREX [Concomitant]
     Active Substance: METHENAMINE HIPPURATE
     Dosage: UNK
     Route: 065
  2. RAMIPRIL ACTAVIS [Concomitant]
     Active Substance: RAMIPRIL
     Dosage: UNK
     Route: 065
  3. MIANSERIN MYLAN [Concomitant]
     Active Substance: MIANSERIN
     Dosage: UNK
     Route: 065
  4. BISOPROLOL SANDOZ [Concomitant]
     Active Substance: BISOPROLOL
     Dosage: UNK
     Route: 065
  5. VESICARE [Concomitant]
     Active Substance: SOLIFENACIN SUCCINATE
     Dosage: UNK
     Route: 065
  6. FLAGYL [Suspect]
     Active Substance: METRONIDAZOLE\METRONIDAZOLE HYDROCHLORIDE
     Dosage: UNK
     Route: 065
  7. CLOPIDOGREL [Concomitant]
     Active Substance: CLOPIDOGREL BISULFATE
     Dosage: UNK
     Route: 065
  8. ZOPIKLON [Concomitant]
     Active Substance: ZOPICLONE
     Dosage: UNK
     Route: 065
  9. NEURONTIN [Suspect]
     Active Substance: GABAPENTIN
     Indication: NEURALGIA
     Dosage: 900 MG, DAILY(1 IN 1 D)
     Route: 065
     Dates: start: 20141105, end: 20170324
  10. FUROSEMIDE CLARIS [Suspect]
     Active Substance: FUROSEMIDE SODIUM
     Dosage: UNK
     Route: 065
  11. AMARYL [Concomitant]
     Active Substance: GLIMEPIRIDE
     Dosage: UNK
     Route: 065
  12. ACETYLSALICYLIC ACID ACTAVIS [Concomitant]
     Active Substance: ASPIRIN
     Dosage: UNK
     Route: 065
  13. SPIRONOLACTONE ORION [Concomitant]
     Active Substance: SPIRONOLACTONE
     Dosage: UNK
     Route: 065
  14. ESCITALOPRAM [Concomitant]
     Active Substance: ESCITALOPRAM OXALATE
     Dosage: UNK
     Route: 065
  15. MALFIN [Concomitant]
     Active Substance: MORPHINE SULFATE
     Dosage: UNK
     Route: 065

REACTIONS (12)
  - Muscle atrophy [Unknown]
  - Tremor [Unknown]
  - Neuropathy peripheral [Unknown]
  - Hypokinesia [Unknown]
  - Myoclonus [Unknown]
  - Amnesia [Unknown]
  - Fatigue [Unknown]
  - Headache [Unknown]
  - Asthenia [Unknown]
  - Neck pain [Unknown]
  - Pain in extremity [Unknown]
  - Somnolence [Unknown]

NARRATIVE: CASE EVENT DATE: 20140101
